FAERS Safety Report 17469857 (Version 2)
Quarter: 2020Q2

REPORT INFORMATION
  Report Type: Spontaneous
  Country: US (occurrence: US)
  Receive Date: 20200227
  Receipt Date: 20200605
  Transmission Date: 20200713
  Serious: No
  Sender: FDA-Public Use
  Company Number: US-009507513-2002USA007850

PATIENT
  Age: 9 Month
  Weight: 8.4 kg

DRUGS (1)
  1. ZERBAXA [Suspect]
     Active Substance: CEFTOLOZANE SULFATE\TAZOBACTAM SODIUM
     Indication: PNEUMONIA
     Dosage: 19 MG/KG

REACTIONS (2)
  - Product use issue [Unknown]
  - Product use in unapproved indication [Unknown]
